FAERS Safety Report 14918507 (Version 2)
Quarter: 2018Q2

REPORT INFORMATION
  Report Type: Spontaneous
  Country: GA (occurrence: GA)
  Receive Date: 20180521
  Receipt Date: 20180524
  Transmission Date: 20180711
  Serious: Yes (Life-Threatening, Hospitalization)
  Sender: FDA-Public Use
  Company Number: PHHY2018GA004153

PATIENT
  Age: 1 Year
  Sex: Male
  Weight: 13 kg

DRUGS (2)
  1. COARTEM [Suspect]
     Active Substance: ARTEMETHER\LUMEFANTRINE
     Indication: MALARIA
     Dosage: 3 DF, QD
     Route: 048
  2. COARTEM [Suspect]
     Active Substance: ARTEMETHER\LUMEFANTRINE
     Dosage: UNK
     Route: 048

REACTIONS (4)
  - Panic disorder [Recovered/Resolved]
  - Incorrect dose administered [Recovered/Resolved]
  - Respiratory disorder [Recovered/Resolved]
  - Drug administration error [Recovered/Resolved]
